FAERS Safety Report 14380302 (Version 2)
Quarter: 2018Q1

REPORT INFORMATION
  Report Type: Spontaneous
  Country: US (occurrence: US)
  Receive Date: 20180112
  Receipt Date: 20180315
  Transmission Date: 20180509
  Serious: No
  Sender: FDA-Public Use
  Company Number: US-PFIZER INC-2018013562

PATIENT
  Age: 57 Year
  Sex: Female
  Weight: 64 kg

DRUGS (5)
  1. XELJANZ [Suspect]
     Active Substance: TOFACITINIB CITRATE
     Indication: RHEUMATOID ARTHRITIS
     Dosage: 10 MG, 1X/DAY 5MG TABLET, TAKES TWO TABLETS ONCE A DAY
     Dates: start: 2017
  2. METHOTREXATE. [Concomitant]
     Active Substance: METHOTREXATE
     Indication: RHEUMATOID ARTHRITIS
     Dosage: 15 MG, WEEKLY
  3. VICOPROFEN [Concomitant]
     Active Substance: HYDROCODONE BITARTRATE\IBUPROFEN
     Indication: RHEUMATOID ARTHRITIS
     Dosage: 1/2 TABLET, AS NEEDED
  4. PREDNISONE. [Concomitant]
     Active Substance: PREDNISONE
     Indication: RHEUMATOID ARTHRITIS
     Dosage: 3 MG, DAILY
  5. ADVIL [Concomitant]
     Active Substance: IBUPROFEN
     Dosage: UNK UNK, AS NEEDED

REACTIONS (1)
  - Fatigue [Unknown]
